FAERS Safety Report 21461733 (Version 8)
Quarter: 2023Q4

REPORT INFORMATION
  Report Type: Report from Study
  Country: US (occurrence: US)
  Receive Date: 20221015
  Receipt Date: 20231125
  Transmission Date: 20240109
  Serious: Yes (Other)
  Sender: FDA-Public Use
  Company Number: US-ABBVIE-4154977

PATIENT
  Age: 59 Year
  Sex: Female

DRUGS (7)
  1. HUMIRA [Suspect]
     Active Substance: ADALIMUMAB
     Indication: Uveitis
     Dosage: FORM STRENGTH- 40 MG?CITRATE FREE
     Route: 058
     Dates: start: 20220502
  2. HUMIRA [Suspect]
     Active Substance: ADALIMUMAB
     Dosage: FORM STRENGTH- 40 MG?CITRATE FREE
     Route: 058
     Dates: start: 20220502
  3. HUMIRA [Suspect]
     Active Substance: ADALIMUMAB
     Dosage: LAST ADMIN DATE- 2022?FORM STRENGTH: 40 MILLIGRAM?CITRATE FREE
     Route: 058
     Dates: start: 20220428
  4. HUMIRA [Suspect]
     Active Substance: ADALIMUMAB
     Dosage: FORM STRENGTH- 40 MG?CITRATE FREE
     Route: 058
     Dates: start: 20220502
  5. HUMIRA [Suspect]
     Active Substance: ADALIMUMAB
     Route: 058
     Dates: start: 20220428
  6. PFIZER-BIONTECH COVID-19 VACCINE [Concomitant]
     Active Substance: TOZINAMERAN
     Indication: COVID-19 immunisation
     Dosage: 1 IN ONCE (1ST DOSE)
     Route: 030
     Dates: start: 20210305, end: 20210305
  7. PFIZER-BIONTECH COVID-19 VACCINE [Concomitant]
     Active Substance: TOZINAMERAN
     Indication: COVID-19 immunisation
     Dosage: 1 IN ONCE (2ND DOSE)
     Route: 030
     Dates: start: 20210405, end: 20210405

REACTIONS (20)
  - Macular oedema [Not Recovered/Not Resolved]
  - Eye operation [Recovering/Resolving]
  - Eye laser surgery [Unknown]
  - Eye operation [Not Recovered/Not Resolved]
  - Fall [Unknown]
  - Back disorder [Not Recovered/Not Resolved]
  - Eye disorder [Not Recovered/Not Resolved]
  - Eye operation [Recovering/Resolving]
  - Photopsia [Unknown]
  - Macular degeneration [Unknown]
  - Retinal detachment [Not Recovered/Not Resolved]
  - Post procedural complication [Not Recovered/Not Resolved]
  - Retinal detachment [Not Recovered/Not Resolved]
  - Glaucoma [Unknown]
  - Altered visual depth perception [Unknown]
  - Eye operation [Unknown]
  - Limb injury [Unknown]
  - Limb operation [Unknown]
  - Musculoskeletal stiffness [Unknown]
  - Back disorder [Unknown]

NARRATIVE: CASE EVENT DATE: 20230125
